FAERS Safety Report 24627491 (Version 1)
Quarter: 2024Q4

REPORT INFORMATION
  Report Type: Spontaneous
  Country: CN (occurrence: CN)
  Receive Date: 20241116
  Receipt Date: 20241116
  Transmission Date: 20250115
  Serious: Yes (Death, Other)
  Sender: ALEXION PHARMACEUTICALS
  Company Number: CN-AstraZeneca-CH-00745926A

PATIENT
  Weight: 45.5 kg

DRUGS (8)
  1. TAGRISSO [Suspect]
     Active Substance: OSIMERTINIB
     Dosage: UNK
  2. TAGRISSO [Suspect]
     Active Substance: OSIMERTINIB
     Dosage: UNK
  3. TAGRISSO [Suspect]
     Active Substance: OSIMERTINIB
     Dosage: UNK
  4. TAGRISSO [Suspect]
     Active Substance: OSIMERTINIB
     Dosage: UNK
  5. TAGRISSO [Suspect]
     Active Substance: OSIMERTINIB
     Dosage: UNK
     Route: 065
  6. TAGRISSO [Suspect]
     Active Substance: OSIMERTINIB
     Dosage: UNK
  7. TAGRISSO [Suspect]
     Active Substance: OSIMERTINIB
     Dosage: UNK
     Route: 065
  8. TAGRISSO [Suspect]
     Active Substance: OSIMERTINIB
     Dosage: UNK

REACTIONS (1)
  - Disease progression [Fatal]
